FAERS Safety Report 13745984 (Version 1)
Quarter: 2017Q3

REPORT INFORMATION
  Report Type: Report from Study
  Country: None (occurrence: US)
  Receive Date: 20170712
  Receipt Date: 20170712
  Transmission Date: 20171127
  Serious: No
  Sender: FDA-Public Use
  Company Number: US-IPSEN BIOPHARMACEUTICALS, INC.-2011-1393

PATIENT
  Sex: Male
  Weight: 78.4 kg

DRUGS (2)
  1. SOMATULINE DEPOT [Suspect]
     Active Substance: LANREOTIDE ACETATE
     Indication: ACROMEGALY
     Dosage: 60 MG
     Route: 058
     Dates: start: 20110310
  2. NONSPECIFIC TOPICAL OINTMENT [Concomitant]
     Indication: STAPHYLOCOCCAL INFECTION
     Dosage: NOT REPORTED
     Route: 061

REACTIONS (4)
  - Diarrhoea [None]
  - Abdominal discomfort [None]
  - Flatulence [None]
  - Defaecation urgency [None]
